FAERS Safety Report 17136808 (Version 1)
Quarter: 2019Q4

REPORT INFORMATION
  Report Type: Report from Study
  Country: GB (occurrence: GB)
  Receive Date: 20191210
  Receipt Date: 20191210
  Transmission Date: 20200122
  Serious: Yes (Other)
  Sender: FDA-Public Use
  Company Number: PHHY2015GB005822

PATIENT
  Age: 27 Year
  Sex: Female

DRUGS (2)
  1. GILENYA [Suspect]
     Active Substance: FINGOLIMOD HYDROCHLORIDE
     Indication: MULTIPLE SCLEROSIS
     Dosage: UNK, QD
     Route: 048
     Dates: start: 20140702, end: 201511
  2. ALEMTUZUMAB [Suspect]
     Active Substance: ALEMTUZUMAB
     Indication: PRODUCT USED FOR UNKNOWN INDICATION
     Route: 065

REACTIONS (20)
  - Lower respiratory tract infection viral [Recovered/Resolved]
  - Headache [Recovered/Resolved]
  - Infusion site rash [Recovered/Resolved]
  - Pruritus [Unknown]
  - Lymphocyte count decreased [Unknown]
  - Flushing [Recovered/Resolved]
  - Hyperthyroidism [Unknown]
  - Fatigue [Unknown]
  - Hypertonic bladder [Unknown]
  - Blood alkaline phosphatase increased [Unknown]
  - Weight increased [Unknown]
  - Optic neuritis [Recovered/Resolved]
  - Rash [Recovered/Resolved]
  - Hypoaesthesia [Unknown]
  - Gait disturbance [Unknown]
  - Neuralgia [Unknown]
  - Alanine aminotransferase increased [Recovered/Resolved]
  - Eye infection [Unknown]
  - Choking sensation [Unknown]
  - Depressed mood [Recovered/Resolved]

NARRATIVE: CASE EVENT DATE: 20140818
